FAERS Safety Report 26217017 (Version 1)
Quarter: 2025Q4

REPORT INFORMATION
  Report Type: Spontaneous
  Country: EU (occurrence: EU)
  Receive Date: 20251231
  Receipt Date: 20251231
  Transmission Date: 20260118
  Serious: Yes (Other)
  Sender: AMGEN
  Company Number: EU-AMGEN-DEUSP2025254739

PATIENT
  Age: 60 Year
  Sex: Female

DRUGS (14)
  1. CARFILZOMIB [Suspect]
     Active Substance: CARFILZOMIB
     Indication: Plasma cell myeloma
     Dosage: UNK
     Route: 065
  2. FILGRASTIM [Suspect]
     Active Substance: FILGRASTIM
     Indication: Cytopenia
     Dosage: UNK
     Route: 065
  3. FILGRASTIM [Suspect]
     Active Substance: FILGRASTIM
     Indication: Immune effector cell-associated haematotoxicity
  4. FILGRASTIM [Suspect]
     Active Substance: FILGRASTIM
     Indication: Off label use
  5. CILTACABTAGENE AUTOLEUCEL [Suspect]
     Active Substance: CILTACABTAGENE AUTOLEUCEL
     Indication: Plasma cell myeloma
     Dosage: UNK, (0.6 X 10^6 /KG BODY WEIGHT; DAY +11).
     Route: 065
  6. TOCILIZUMAB [Concomitant]
     Active Substance: TOCILIZUMAB
     Indication: Cytopenia
     Dosage: 8 MILLIGRAM/KILOGRAM
  7. TOCILIZUMAB [Concomitant]
     Active Substance: TOCILIZUMAB
     Indication: Immune effector cell-associated haematotoxicity
  8. DEXAMETHASONE [Concomitant]
     Active Substance: DEXAMETHASONE
     Indication: Cytopenia
     Dosage: 10 MILLIGRAM, EVERY 4 DAYS STARTING DAY +6
  9. DEXAMETHASONE [Concomitant]
     Active Substance: DEXAMETHASONE
     Indication: Immune effector cell-associated haematotoxicity
  10. DEXAMETHASONE [Concomitant]
     Active Substance: DEXAMETHASONE
     Indication: Plasma cell myeloma
  11. ANAKINRA [Concomitant]
     Active Substance: ANAKINRA
     Indication: Cytopenia
     Dosage: UNK, FROM DAY +7 TO DAY +17
  12. ANAKINRA [Concomitant]
     Active Substance: ANAKINRA
     Indication: Immune effector cell-associated haematotoxicity
  13. FLUDARABINE [Concomitant]
     Active Substance: FLUDARABINE PHOSPHATE
     Dosage: 30 MILLIGRAM/SQ. METER
  14. CYCLOPHOSPHAMIDE [Concomitant]
     Active Substance: CYCLOPHOSPHAMIDE
     Dosage: 300 MILLIGRAM/SQ. METER, DAY - 5 TO DAY - 3

REACTIONS (7)
  - Plasma cell myeloma [Recovered/Resolved]
  - Acute lymphocytic leukaemia [Recovered/Resolved]
  - Cytokine release syndrome [Unknown]
  - Immune effector cell-associated neurotoxicity syndrome [Unknown]
  - Immune effector cell-associated haematotoxicity [Unknown]
  - Haemophagocytic lymphohistiocytosis [Unknown]
  - Off label use [Unknown]
